FAERS Safety Report 13386654 (Version 1)
Quarter: 2017Q1

REPORT INFORMATION
  Report Type: Report from Study
  Country: CO (occurrence: CO)
  Receive Date: 20170330
  Receipt Date: 20170330
  Transmission Date: 20170429
  Serious: Yes (Other)
  Sender: FDA-Public Use
  Company Number: CO-AMGEN-COLSL2017001278

PATIENT
  Age: 76 Year
  Sex: Female

DRUGS (1)
  1. VECTIBIX [Suspect]
     Active Substance: PANITUMUMAB
     Indication: COLORECTAL CANCER METASTATIC
     Dosage: 400 MG, Q2WK
     Route: 042
     Dates: start: 20160831

REACTIONS (10)
  - Inflammation [Recovered/Resolved]
  - Aphthous ulcer [Not Recovered/Not Resolved]
  - Genital burning sensation [Recovered/Resolved]
  - Skin fissures [Not Recovered/Not Resolved]
  - Diarrhoea [Recovered/Resolved]
  - Hand dermatitis [Not Recovered/Not Resolved]
  - Anal pruritus [Recovered/Resolved]
  - Erythema [Not Recovered/Not Resolved]
  - Thrombosis [Not Recovered/Not Resolved]
  - Xerosis [Not Recovered/Not Resolved]

NARRATIVE: CASE EVENT DATE: 20161128
